FAERS Safety Report 4504899-X (Version None)
Quarter: 2004Q4

REPORT INFORMATION
  Report Type: 
  Country: None (occurrence: None)
  Receive Date: 20040928
  Receipt Date: 20040715
  Transmission Date: 20050328
  Serious: No
  Sender: FDA-Public Use
  Company Number: 04P-163-0267059-00

PATIENT
  Age: 49 Year
  Sex: Female
  Weight: 72.5755 kg

DRUGS (14)
  1. HUMIRA [Suspect]
     Indication: RHEUMATOID ARTHRITIS
     Dosage: SEE IMAGE
     Route: 058
     Dates: start: 20030101, end: 20030101
  2. HUMIRA [Suspect]
     Indication: RHEUMATOID ARTHRITIS
     Dosage: SEE IMAGE
     Route: 058
     Dates: start: 20030101
  3. TOPRAMAX [Concomitant]
  4. LOTREL [Concomitant]
  5. RABEPRAZOLE SODIUM [Concomitant]
  6. IBUPROFEN [Concomitant]
  7. CITALOPRAM HYDROBROMIDE [Concomitant]
  8. CONJUGATED ESTROGEN [Concomitant]
  9. PREDNISONE [Concomitant]
  10. TIZANIDINE HCL [Concomitant]
  11. PHENERGAN [Concomitant]
  12. OXYCONTIN [Concomitant]
  13. CARISPRODOL [Concomitant]
  14. CLONIDINE [Concomitant]

REACTIONS (4)
  - DRUG EFFECT DECREASED [None]
  - INJECTION SITE HAEMORRHAGE [None]
  - INJECTION SITE PAIN [None]
  - INJECTION SITE SWELLING [None]
